FAERS Safety Report 8386113-0 (Version None)
Quarter: 2012Q2

REPORT INFORMATION
  Report Type: 
  Country: None (occurrence: None)
  Receive Date: 20120525
  Receipt Date: 20120518
  Transmission Date: 20120825
  Serious: Yes (Other)
  Sender: FDA-Public Use
  Company Number: US-JNJFOC-20120402225

PATIENT
  Sex: Female
  Weight: 126.1 kg

DRUGS (12)
  1. PREMARIN [Suspect]
     Indication: HORMONE REPLACEMENT THERAPY
     Route: 048
     Dates: start: 19950101
  2. LOVASTATIN [Concomitant]
     Indication: BLOOD CHOLESTEROL INCREASED
     Route: 065
  3. POTASSIUM CHLORIDE [Concomitant]
     Route: 065
  4. HYDROCHLOROTHIAZIDE [Concomitant]
     Route: 065
  5. LASIX [Concomitant]
     Indication: OEDEMA
     Route: 065
  6. BUSPAR [Concomitant]
     Route: 065
  7. NEURONTIN [Suspect]
     Indication: NEUROPATHY PERIPHERAL
     Route: 048
     Dates: start: 20080101
  8. DIOVAN [Concomitant]
     Indication: HYPERTENSION
     Route: 065
  9. ZYRTEC [Suspect]
     Route: 048
  10. ZYRTEC [Suspect]
     Indication: HYPERSENSITIVITY
     Route: 048
     Dates: start: 20080101
  11. TOPROL-XL [Concomitant]
     Indication: HYPERTENSION
     Route: 065
  12. NEXIUM [Concomitant]
     Route: 065

REACTIONS (4)
  - EMPHYSEMA [None]
  - DRUG INEFFECTIVE [None]
  - BLOOD CHOLESTEROL INCREASED [None]
  - OFF LABEL USE [None]
